FAERS Safety Report 6750209-7 (Version None)
Quarter: 2010Q2

REPORT INFORMATION
  Report Type: 
  Country: None (occurrence: None)
  Receive Date: 20100601
  Receipt Date: 20100521
  Transmission Date: 20101027
  Serious: Yes (Other)
  Sender: FDA-Public Use
  Company Number: US-PFIZER INC-2010064769

PATIENT
  Sex: Female

DRUGS (2)
  1. CHANTIX [Suspect]
     Dosage: STARTER PACK
  2. METFORMIN [Concomitant]
     Dosage: 500 MG, 1X/DAY

REACTIONS (2)
  - MAJOR DEPRESSION [None]
  - PSYCHOTIC DISORDER [None]
